FAERS Safety Report 6904931-X (Version None)
Quarter: 2010Q3

REPORT INFORMATION
  Report Type: 
  Country: None (occurrence: None)
  Receive Date: 20100804
  Receipt Date: 20100727
  Transmission Date: 20110219
  Serious: Yes (Other)
  Sender: FDA-Public Use
  Company Number: JP-SHIRE-ALL1-2010-03493

PATIENT

DRUGS (6)
  1. FOSRENOL [Suspect]
     Indication: HYPERPHOSPHATAEMIA
     Dosage: 750 MG, 1X/DAY:QD
     Route: 048
     Dates: start: 20100102, end: 20100413
  2. FOSRENOL [Suspect]
     Dosage: 1500 MG, 1X/DAY:QD
     Route: 048
     Dates: start: 20100414, end: 20100603
  3. OXAROL [Concomitant]
     Indication: HYPERPARATHYROIDISM SECONDARY
     Dosage: 5 UG, UNKNOWN
     Route: 042
     Dates: start: 20100306, end: 20100430
  4. OXAROL [Concomitant]
     Dosage: 5 UG, UNKNOWN
     Route: 042
     Dates: start: 20100507
  5. PHOSBLOCK [Concomitant]
     Indication: HYPERPHOSPHATAEMIA
     Dosage: 3000 MG, UNKNOWN
     Route: 048
     Dates: start: 20081105, end: 20100101
  6. PHOSBLOCK [Concomitant]
     Dosage: 1500 MG, UNKNOWN
     Route: 048
     Dates: start: 20100625, end: 20100721

REACTIONS (1)
  - HYPOCALCAEMIA [None]
